FAERS Safety Report 9294052 (Version 1)
Quarter: 2013Q2

REPORT INFORMATION
  Report Type: Spontaneous
  Country: US (occurrence: None)
  Receive Date: 20130514
  Receipt Date: 20130514
  Transmission Date: 20140414
  Serious: Yes (Hospitalization)
  Sender: FDA-Public Use
  Company Number: 001527718A

PATIENT
  Age: 60 Year
  Sex: Female

DRUGS (4)
  1. MB* ANTIOXIDANT DAY CREME SPF 20 [Suspect]
     Dates: start: 20130418, end: 20130419
  2. MB* SKIN BRIGHTENING DECOLLETE+NECK TREATMENT SPF 15 [Suspect]
     Dates: start: 20130418, end: 20130419
  3. AZOR [Concomitant]
  4. VITAMIN C [Concomitant]

REACTIONS (3)
  - Swelling face [None]
  - Gastric disorder [None]
  - Swelling [None]
